FAERS Safety Report 7397136-2 (Version None)
Quarter: 2011Q2

REPORT INFORMATION
  Report Type: 
  Country: None (occurrence: None)
  Receive Date: 20110406
  Receipt Date: 20110124
  Transmission Date: 20111010
  Serious: Yes (Hospitalization)
  Sender: FDA-Public Use
  Company Number: B0696552A

PATIENT
  Sex: Female
  Weight: 44 kg

DRUGS (54)
  1. DIOVAN [Concomitant]
     Dosage: 80MG PER DAY
     Route: 048
     Dates: start: 20090731, end: 20090815
  2. AMLODIN [Concomitant]
     Dosage: 10MG PER DAY
     Route: 048
     Dates: start: 20090816
  3. GASTER [Concomitant]
     Dosage: 40MG PER DAY
     Route: 048
     Dates: start: 20090816, end: 20090910
  4. POTASSIUM CHLORIDE [Concomitant]
     Dosage: 40ML PER DAY
     Route: 042
     Dates: start: 20090813
  5. BROACT [Concomitant]
     Dosage: 2IUAX PER DAY
     Route: 042
     Dates: start: 20090814, end: 20090814
  6. DIOVAN [Concomitant]
     Dosage: 80MG PER DAY
     Route: 048
     Dates: start: 20090821
  7. CRESTOR [Concomitant]
     Dosage: 2.5MG PER DAY
     Route: 048
     Dates: start: 20090731, end: 20090820
  8. ASPARA-CA [Concomitant]
     Dosage: 800MG PER DAY
     Route: 048
     Dates: start: 20090731, end: 20090820
  9. LOXOPROFEN [Concomitant]
     Dosage: 120MG PER DAY
     Route: 048
     Dates: start: 20090811, end: 20090816
  10. GASTER D [Concomitant]
     Dosage: 40MG PER DAY
     Route: 048
     Dates: start: 20090813, end: 20090816
  11. BROACT [Concomitant]
     Dosage: 1IUAX PER DAY
     Route: 042
     Dates: start: 20090830, end: 20090830
  12. MAGLAX [Concomitant]
     Dosage: 500MG PER DAY
     Route: 048
     Dates: start: 20090731, end: 20090813
  13. DIOVAN [Concomitant]
     Dosage: 160MG PER DAY
     Route: 048
     Dates: start: 20090816
  14. AMLODIN [Concomitant]
     Dosage: 5MG PER DAY
     Route: 048
     Dates: start: 20090731, end: 20090815
  15. ISODINE GARGLE [Concomitant]
     Route: 002
     Dates: start: 20090803, end: 20090803
  16. LOXOPROFEN [Concomitant]
     Dosage: 60MG PER DAY
     Route: 048
     Dates: start: 20090817, end: 20090817
  17. CYTOTEC [Concomitant]
     Dosage: 200MCG PER DAY
     Route: 048
     Dates: start: 20090807, end: 20090809
  18. MAGNESIUM OXIDE [Concomitant]
     Dosage: 1.5G PER DAY
     Route: 048
     Dates: start: 20090821
  19. PRIMPERAN TAB [Concomitant]
     Dosage: 2ML PER DAY
     Dates: start: 20090805
  20. PRIMPERAN TAB [Concomitant]
     Dosage: 2ML PER DAY
     Dates: start: 20090813
  21. GASTER [Concomitant]
     Dosage: 2ML PER DAY
     Route: 042
     Dates: start: 20090812, end: 20090812
  22. DIART [Concomitant]
     Dosage: 30MG PER DAY
     Route: 048
     Dates: start: 20090731
  23. SANMEL [Concomitant]
     Dosage: 60ML PER DAY
     Route: 048
     Dates: start: 20090817, end: 20090823
  24. KYTRIL [Concomitant]
     Dosage: 1IUAX PER DAY
     Route: 042
     Dates: start: 20090803
  25. HAPTOGLOBIN [Concomitant]
     Dosage: 2IUAX PER DAY
     Dates: start: 20090806, end: 20090806
  26. ALKERAN [Suspect]
     Indication: STEM CELL TRANSPLANT
     Dosage: 100MGM2 PER DAY
     Route: 042
     Dates: start: 20090803, end: 20100804
  27. GRAN [Concomitant]
     Dates: start: 20090807, end: 20090815
  28. AMPHOTERICIN B [Concomitant]
     Dosage: 60ML PER DAY
     Route: 048
     Dates: start: 20090803
  29. MYSLEE [Concomitant]
     Dosage: 10MG PER DAY
     Route: 048
     Dates: start: 20090803, end: 20090808
  30. MYSLEE [Concomitant]
     Dosage: 15MG PER DAY
     Route: 048
     Dates: start: 20090809, end: 20090818
  31. MYSLEE [Concomitant]
     Dosage: 15MG PER DAY
     Route: 048
     Dates: start: 20090822
  32. POSTERISAN [Concomitant]
     Route: 061
     Dates: start: 20090816, end: 20090818
  33. COMELIAN [Concomitant]
     Dosage: 100MG PER DAY
     Route: 048
     Dates: start: 20090731, end: 20090820
  34. AMLODIN [Concomitant]
     Dosage: 5MG PER DAY
     Route: 048
     Dates: start: 20090821
  35. CYTOTEC [Concomitant]
     Dosage: 200MCG PER DAY
     Route: 048
     Dates: start: 20090817, end: 20090820
  36. UNKNOWN [Concomitant]
     Dosage: 3IUAX PER DAY
     Route: 048
     Dates: start: 20090825
  37. HEPARIN [Concomitant]
     Dosage: 3IUAX PER DAY
     Route: 042
     Dates: start: 20090802
  38. CRAVIT [Concomitant]
     Dosage: 300MG PER DAY
     Route: 048
     Dates: start: 20090803
  39. MYSLEE [Concomitant]
     Dosage: 10MG PER DAY
     Route: 048
     Dates: start: 20090819, end: 20090821
  40. HACHIAZULE [Concomitant]
     Route: 002
     Dates: start: 20090805, end: 20090820
  41. PRIMPERAN TAB [Concomitant]
     Dosage: 15MG PER DAY
     Route: 048
     Dates: start: 20090806
  42. LOXOPROFEN [Concomitant]
     Dosage: 60MG PER DAY
     Route: 048
     Dates: start: 20090807, end: 20090810
  43. CYTOTEC [Concomitant]
     Dosage: 200MCG PER DAY
     Route: 048
     Dates: start: 20090810, end: 20090816
  44. BROACT [Concomitant]
     Dosage: 3IUAX PER DAY
     Route: 042
     Dates: start: 20090820, end: 20090820
  45. MOHRUS TAPE [Concomitant]
     Route: 062
     Dates: start: 20090811, end: 20090818
  46. XYLOCAINE [Concomitant]
     Route: 061
     Dates: start: 20090817, end: 20090817
  47. BIOFERMIN [Concomitant]
     Dosage: 3IUAX PER DAY
     Route: 048
     Dates: start: 20090818, end: 20090820
  48. BIOFERMIN R [Concomitant]
     Dosage: 3G PER DAY
     Route: 048
     Dates: start: 20090819, end: 20090825
  49. COCARL [Concomitant]
     Dosage: 300MG PER DAY
     Route: 048
     Dates: start: 20090825, end: 20090903
  50. MEYLON [Concomitant]
     Dosage: 80ML PER DAY
     Route: 042
     Dates: start: 20090803, end: 20090804
  51. SOLU-CORTEF [Concomitant]
     Dosage: 1IUAX PER DAY
     Dates: start: 20090803
  52. FLURBIPROFEN [Concomitant]
     Route: 042
     Dates: start: 20090815, end: 20090823
  53. BROACT [Concomitant]
     Dosage: 4IUAX PER DAY
     Route: 042
     Dates: start: 20090813, end: 20090813
  54. BROACT [Concomitant]
     Dosage: 1IUAX PER DAY
     Route: 042
     Dates: start: 20090821, end: 20090821

REACTIONS (1)
  - INTERSTITIAL LUNG DISEASE [None]
